FAERS Safety Report 9461447 (Version 1)
Quarter: 2013Q3

REPORT INFORMATION
  Report Type: Spontaneous
  Country: US (occurrence: None)
  Receive Date: 20130814
  Receipt Date: 20130814
  Transmission Date: 20140515
  Serious: Yes (Life-Threatening, Hospitalization, Disabling, Other)
  Sender: FDA-Public Use
  Company Number: None

PATIENT
  Age: 62 Year
  Sex: Female
  Weight: 72.12 kg

DRUGS (2)
  1. FOSINOPRIL [Suspect]
     Indication: HYPERTENSION
     Route: 048
  2. LOSARTAN [Suspect]
     Indication: HYPERTENSION
     Route: 048

REACTIONS (9)
  - Cough [None]
  - Diplopia [None]
  - Feeling abnormal [None]
  - Abdominal discomfort [None]
  - Abdominal pain upper [None]
  - Dyspepsia [None]
  - Pain [None]
  - Flatulence [None]
  - Ovarian disorder [None]
